FAERS Safety Report 13910929 (Version 2)
Quarter: 2018Q2

REPORT INFORMATION
  Report Type: Spontaneous
  Country: FR (occurrence: FR)
  Receive Date: 20170828
  Receipt Date: 20180601
  Transmission Date: 20180711
  Serious: Yes (Hospitalization)
  Sender: FDA-Public Use
  Company Number: FR-TEVA-799303ROM

PATIENT
  Age: 76 Year
  Sex: Male

DRUGS (10)
  1. KARDEGIC [Suspect]
     Active Substance: ASPIRIN DL-LYSINE
     Indication: PROPHYLAXIS
     Dosage: 1 DOSAGE FORMS DAILY; LONG-STANDING TREATMENT, 1 DF AT NOON
     Route: 048
  2. SERESTA 10 MG [Suspect]
     Active Substance: OXAZEPAM
     Indication: PRODUCT USED FOR UNKNOWN INDICATION
     Dosage: 1 DOSAGE FORMS DAILY; LONG-STANDING TREATMENT, 1 DF IN THE EVENING
     Route: 048
  3. BISOPROLOL 5 MG [Suspect]
     Active Substance: BISOPROLOL
     Indication: HYPERTENSION
     Dosage: 1 DOSAGE FORMS DAILY; LONG-STANDING TREATMENT, 1 DF IN THE MORNING
     Route: 048
  4. CRESTOR [Suspect]
     Active Substance: ROSUVASTATIN CALCIUM
     Indication: DYSLIPIDAEMIA
     Dosage: 1 DOSAGE FORMS DAILY; LONG-STANDING TREATMENT, 1 DF IN THE EVENING
     Route: 048
  5. DOLIPRANE [Suspect]
     Active Substance: ACETAMINOPHEN
     Indication: PAIN
     Dosage: LONG-STANDING TREATMENT
     Route: 048
  6. OROCAL  500 MG/400 IU [Suspect]
     Active Substance: CALCIUM CARBONATE\CHOLECALCIFEROL
     Indication: VITAMIN D DEFICIENCY
     Dosage: 2 DOSAGE FORMS DAILY; LONG-STANDING TREATMENT
     Route: 048
  7. LANSOPRAZOLE 15 MG [Suspect]
     Active Substance: LANSOPRAZOLE
     Indication: PRODUCT USED FOR UNKNOWN INDICATION
     Dosage: 1 DOSAGE FORMS DAILY; LONG-STANDING TREATMENT, 1 DF IN THE EVENING
     Route: 048
  8. FUROSEMIDE 40 MG [Suspect]
     Active Substance: FUROSEMIDE
     Indication: HYPERTENSION
     Dosage: 1 DOSAGE FORMS DAILY; LONG-STANDING TREATMENT, 1 DF IN THE MORNING
     Route: 048
  9. RAMIPRIL 1.25 MG [Suspect]
     Active Substance: RAMIPRIL
     Indication: HYPERTENSION
     Dosage: 1 DOSAGE FORMS DAILY; LONG-STANDING TREATMENT, 1 DF IN THE MORNING
     Route: 048
  10. ZYMAD 200 000 UI [Suspect]
     Active Substance: CHOLECALCIFEROL
     Indication: VITAMIN SUPPLEMENTATION
     Dosage: .0056 DOSAGE FORMS DAILY; LONG-STANDING TREATMENT, 1 AMPOULE EVERY 6 MONTHS
     Route: 048

REACTIONS (1)
  - Melanoderma [Not Recovered/Not Resolved]

NARRATIVE: CASE EVENT DATE: 20161201
